FAERS Safety Report 5345958-1 (Version None)
Quarter: 2007Q2

REPORT INFORMATION
  Report Type: 
  Country: None (occurrence: None)
  Receive Date: 20070605
  Receipt Date: 20070530
  Transmission Date: 20071010
  Serious: Yes (Hospitalization, Disabling)
  Sender: FDA-Public Use
  Company Number: D0053431A

PATIENT
  Age: 71 Year
  Sex: Female

DRUGS (8)
  1. AVANDAMET [Suspect]
     Dosage: 1004MG UNKNOWN
     Route: 048
     Dates: start: 20030101
  2. IBANDRONATE SODIUM [Concomitant]
     Indication: OSTEOPOROSIS
     Route: 048
  3. CALCIUM CHLORIDE [Concomitant]
     Indication: OSTEOPOROSIS
     Route: 048
  4. BISOPROLOL FUMARATE [Concomitant]
     Indication: HYPERTENSION
     Route: 065
  5. CANDESARTAN [Concomitant]
     Indication: HYPERTENSION
     Route: 065
  6. HYDROCHLOROTHIAZIDE [Concomitant]
     Indication: HYPERTENSION
     Route: 065
  7. OMEPRAZOLE [Concomitant]
     Route: 065
  8. ATORVASTATIN [Concomitant]
     Route: 065

REACTIONS (5)
  - FOOT FRACTURE [None]
  - MULTIPLE FRACTURES [None]
  - TIBIA FRACTURE [None]
  - UPPER LIMB FRACTURE [None]
  - WRIST FRACTURE [None]
